FAERS Safety Report 9780239 (Version 1)
Quarter: 2013Q4

REPORT INFORMATION
  Report Type: Spontaneous
  Country: GB (occurrence: GB)
  Receive Date: 20131223
  Receipt Date: 20131223
  Transmission Date: 20140711
  Serious: Yes (Other)
  Sender: FDA-Public Use
  Company Number: ALCN2013GB006327

PATIENT
  Age: 39 Year
  Sex: Female

DRUGS (5)
  1. MAXIDEX [Suspect]
     Indication: UVEITIS
     Dosage: 1 GTT, QID
     Route: 047
     Dates: start: 20131118
  2. MAXIDEX [Suspect]
     Dosage: 1 GTT, QD
     Route: 047
     Dates: end: 20131205
  3. MAXIDEX [Suspect]
     Dosage: 1 GTT, BID
     Route: 047
  4. MAXIDEX [Suspect]
     Dosage: 1 GTT, TID
     Route: 047
  5. MAXIDEX [Suspect]
     Dosage: UNK

REACTIONS (1)
  - Mydriasis [Unknown]
